FAERS Safety Report 4537206-7 (Version None)
Quarter: 2004Q4

REPORT INFORMATION
  Report Type: 
  Country: None (occurrence: None)
  Receive Date: 20041221
  Receipt Date: 20041109
  Transmission Date: 20050328
  Serious: Yes (Other)
  Sender: FDA-Public Use
  Company Number: 2004092403

PATIENT
  Age: 58 Year
  Sex: Female
  Weight: 123.832 kg

DRUGS (19)
  1. BEXTRA [Suspect]
     Indication: PAIN
     Dosage: 40 MG (20 MG, 2 IN 1 D), ORAL
     Route: 048
     Dates: start: 20020101
  2. TOCOPHEROL CONCENTRATE CAP [Concomitant]
  3. ASPIRIN [Concomitant]
  4. RAMIPRIL [Concomitant]
  5. FUROSEMIDE [Concomitant]
  6. ESCITALOPRAM (ESCITALOPRAM) [Concomitant]
  7. UBIDECARENONE (UBIDECARENONE) [Concomitant]
  8. METFORMIN HCL [Concomitant]
  9. FISH OIL (FISH OIL) [Concomitant]
  10. PYRIDOXINE HCL [Concomitant]
  11. LEVETIRACETAM [Concomitant]
  12. CLONAZEPAM [Concomitant]
  13. FOLIC ACID [Concomitant]
  14. MESUXIMIDE (MESUXIMIDE) [Concomitant]
  15. PROGESTERONE [Concomitant]
  16. BUTALBITAL W/ASPIRIN, CAFFEINE (ACETYLSALICYLIC ACID, BUTALBITAL, CAFF [Concomitant]
  17. IBUPROFEN [Concomitant]
  18. LORAZEPAM [Concomitant]
  19. QUETIAPINE FUMARATE (QUETIAPINE FUMARATE) [Concomitant]

REACTIONS (7)
  - CONTUSION [None]
  - COUGH [None]
  - DERMATITIS EXFOLIATIVE [None]
  - FALL [None]
  - FEELING ABNORMAL [None]
  - JAUNDICE [None]
  - SKIN DISCOLOURATION [None]
